FAERS Safety Report 20578195 (Version 1)
Quarter: 2022Q1

REPORT INFORMATION
  Report Type: Spontaneous
  Country: None (occurrence: US)
  Receive Date: 20220310
  Receipt Date: 20220310
  Transmission Date: 20220423
  Serious: No
  Sender: FDA-Public Use
  Company Number: US-Acacia Pharma Limited-2126643

PATIENT
  Age: 51 Year
  Sex: Male

DRUGS (2)
  1. BARHEMSYS [Suspect]
     Active Substance: AMISULPRIDE
     Indication: Prophylaxis of nausea and vomiting
     Route: 042
     Dates: start: 20220124, end: 20220124
  2. NITROGLYCERIN [Concomitant]
     Active Substance: NITROGLYCERIN
     Dates: start: 20220124

REACTIONS (7)
  - Chest discomfort [Recovered/Resolved]
  - Tachycardia [Recovered/Resolved]
  - Dyspnoea [Recovered/Resolved]
  - Hypotension [Recovered/Resolved]
  - Hypokalaemia [Recovered/Resolved]
  - Hypomagnesaemia [Recovered/Resolved]
  - Electrocardiogram QRS complex abnormal [Recovered/Resolved]

NARRATIVE: CASE EVENT DATE: 20220124
